FAERS Safety Report 5823394-9 (Version None)
Quarter: 2008Q3

REPORT INFORMATION
  Report Type: 
  Country: None (occurrence: None)
  Receive Date: 20080725
  Receipt Date: 20080721
  Transmission Date: 20090109
  Serious: Yes (Hospitalization)
  Sender: FDA-Public Use
  Company Number: AU-JNJFOC-20080404574

PATIENT
  Sex: Female

DRUGS (5)
  1. TOPAMAX [Suspect]
     Indication: MIGRAINE
     Route: 048
  2. PARADEINE FORTE [Concomitant]
     Indication: MIGRAINE
  3. CODEINE SUL TAB [Concomitant]
     Indication: MIGRAINE
  4. DIAZEPAM [Concomitant]
     Indication: MIGRAINE
  5. IMIGRAN [Concomitant]
     Indication: MIGRAINE

REACTIONS (2)
  - ELECTROCARDIOGRAM QT PROLONGED [None]
  - PALPITATIONS [None]
